FAERS Safety Report 8508238-9 (Version None)
Quarter: 2012Q3

REPORT INFORMATION
  Report Type: 
  Country: None (occurrence: None)
  Receive Date: 20120713
  Receipt Date: 20120706
  Transmission Date: 20120928
  Serious: Yes (Death, Other)
  Sender: FDA-Public Use
  Company Number: US-BRISTOL-MYERS SQUIBB COMPANY-16749566

PATIENT
  Age: 55 Year
  Sex: Male

DRUGS (5)
  1. METHADONE HCL [Concomitant]
  2. IBUPROFEN [Concomitant]
     Route: 048
  3. ERBITUX [Suspect]
     Indication: HEAD AND NECK CANCER
  4. ERBITUX [Suspect]
     Indication: HEPATIC NEOPLASM MALIGNANT
  5. VICODIN [Concomitant]
     Indication: BACK PAIN

REACTIONS (5)
  - DYSPHAGIA [None]
  - DEATH [None]
  - BACK PAIN [None]
  - DEHYDRATION [None]
  - COUGH [None]
